FAERS Safety Report 6536073-X (Version None)
Quarter: 2010Q1

REPORT INFORMATION
  Report Type: 
  Country: None (occurrence: None)
  Receive Date: 20100113
  Receipt Date: 20090925
  Transmission Date: 20100710
  Serious: No
  Sender: FDA-Public Use
  Company Number: US-ALLERGAN-0913412US

PATIENT
  Age: 35 Year
  Sex: Female

DRUGS (3)
  1. LATISSE [Suspect]
     Indication: GROWTH OF EYELASHES
  2. MASCARA [Concomitant]
  3. EYELINER [Concomitant]

REACTIONS (1)
  - OCULAR HYPERAEMIA [None]
